FAERS Safety Report 8313007-9 (Version None)
Quarter: 2012Q2

REPORT INFORMATION
  Report Type: 
  Country: None (occurrence: None)
  Receive Date: 20120426
  Receipt Date: 20120113
  Transmission Date: 20120825
  Serious: No
  Sender: FDA-Public Use
  Company Number: US-MYLANLABS-2012S1001160

PATIENT
  Sex: Male

DRUGS (6)
  1. PLAVIX [Concomitant]
  2. PRILOSEC [Concomitant]
  3. TAMSULOSIN HCL [Suspect]
     Indication: BENIGN PROSTATIC HYPERPLASIA
     Route: 048
     Dates: start: 20111214
  4. ASPIRIN [Concomitant]
  5. LIPITOR [Concomitant]
     Route: 048
  6. FINASTERIDE [Suspect]
     Indication: BENIGN PROSTATIC HYPERPLASIA
     Route: 048
     Dates: start: 20111214

REACTIONS (2)
  - DIZZINESS [None]
  - HEART RATE INCREASED [None]
